FAERS Safety Report 17659072 (Version 1)
Quarter: 2020Q2

REPORT INFORMATION
  Report Type: Spontaneous
  Country: US (occurrence: US)
  Receive Date: 20200413
  Receipt Date: 20200413
  Transmission Date: 20200713
  Serious: No
  Sender: FDA-Public Use
  Company Number: US-BION-007852

PATIENT
  Age: 47 Year
  Sex: Female
  Weight: 68.04 kg

DRUGS (4)
  1. ALEVE [Suspect]
     Active Substance: NAPROXEN SODIUM
     Indication: PRODUCT USED FOR UNKNOWN INDICATION
     Route: 048
  2. DULOXETINE. [Concomitant]
     Active Substance: DULOXETINE
     Indication: ANXIETY
     Dosage: DOSE: 60 MG IN THE MORNING AND 30 MG AT NIGHT
  3. LYRICA [Concomitant]
     Active Substance: PREGABALIN
     Indication: FIBROMYALGIA
     Dates: start: 2014
  4. PHENOBARBITAL. [Concomitant]
     Active Substance: PHENOBARBITAL
     Indication: SEIZURE
     Dosage: STRENGTH: 64.8 MG?DOSE: 1 TABLET IN THE MORNING AND 2 TABLETS AT NIGHT
     Route: 048

REACTIONS (1)
  - Drug ineffective [Not Recovered/Not Resolved]
